FAERS Safety Report 19308832 (Version 1)
Quarter: 2021Q2

REPORT INFORMATION
  Report Type: Report from Study
  Country: CA (occurrence: CA)
  Receive Date: 20210526
  Receipt Date: 20210526
  Transmission Date: 20210717
  Serious: Yes (Other)
  Sender: FDA-Public Use
  Company Number: PHHY2013CA090759

PATIENT
  Age: 29 Year
  Sex: Male

DRUGS (4)
  1. SANDOSTATIN LAR DEPOT [Suspect]
     Active Substance: OCTREOTIDE ACETATE
     Dosage: 30 MG, QMO
     Route: 030
     Dates: start: 20120201
  2. SANDOSTATIN LAR DEPOT [Suspect]
     Active Substance: OCTREOTIDE ACETATE
     Dosage: 30 MG, QMO
     Route: 030
     Dates: start: 20140408
  3. SANDOSTATIN LAR DEPOT [Suspect]
     Active Substance: OCTREOTIDE ACETATE
     Indication: THYROID STIMULATING HORMONE-PRODUCING PITUITARY TUMOUR
     Dosage: 20 MG, QMO
     Route: 030
     Dates: start: 20110420, end: 20120105
  4. SANDOSTATIN LAR DEPOT [Suspect]
     Active Substance: OCTREOTIDE ACETATE
     Dosage: 30 MG, QMO
     Route: 030
     Dates: start: 20170908

REACTIONS (14)
  - Pituitary tumour recurrent [Unknown]
  - Influenza [Not Recovered/Not Resolved]
  - Needle issue [Unknown]
  - Blood pressure systolic increased [Unknown]
  - Injection site pain [Recovered/Resolved]
  - Injection site pain [Recovered/Resolved]
  - Injection site mass [Recovering/Resolving]
  - Malaise [Not Recovered/Not Resolved]
  - Injection site pain [Unknown]
  - Blood pressure abnormal [Unknown]
  - Product storage error [Unknown]
  - Pain [Recovering/Resolving]
  - Body temperature abnormal [Unknown]
  - Injection site bruising [Unknown]

NARRATIVE: CASE EVENT DATE: 201308
